FAERS Safety Report 5074881-5 (Version None)
Quarter: 2006Q3

REPORT INFORMATION
  Report Type: 
  Country: None (occurrence: None)
  Receive Date: 20060804
  Receipt Date: 20060721
  Transmission Date: 20061208
  Serious: Yes (Other)
  Sender: FDA-Public Use
  Company Number: ABFLT-06-0375

PATIENT
  Age: 48 Year
  Sex: Female

DRUGS (4)
  1. ABRAXANE [Suspect]
     Indication: BREAST CANCER
     Dosage: 10 CYCLES, INTRAVENOUS DRIP
     Route: 041
     Dates: end: 20060501
  2. AVASTIN [Suspect]
     Indication: BREAST CANCER
     Dosage: 10 CYCLES, INTRAVENOUS
     Route: 042
     Dates: end: 20060501
  3. NEXIUM [Concomitant]
  4. RISPERDAL [Concomitant]

REACTIONS (31)
  - ALANINE AMINOTRANSFERASE INCREASED [None]
  - ASPARTATE AMINOTRANSFERASE INCREASED [None]
  - BILE DUCT OBSTRUCTION [None]
  - BLOOD ALBUMIN DECREASED [None]
  - BLOOD ALKALINE PHOSPHATASE INCREASED [None]
  - BLOOD BILIRUBIN INCREASED [None]
  - BLOOD CALCIUM DECREASED [None]
  - BLOOD CREATININE DECREASED [None]
  - BLOOD SODIUM DECREASED [None]
  - BLOOD UREA DECREASED [None]
  - CHOLANGITIS ACUTE [None]
  - CHOLESTASIS [None]
  - CHRONIC OBSTRUCTIVE PULMONARY DISEASE [None]
  - HAEMATOCRIT DECREASED [None]
  - HAEMATOMA [None]
  - HAEMOGLOBIN DECREASED [None]
  - HEPATIC CYST [None]
  - HEPATOMEGALY [None]
  - HYPOCHROMASIA [None]
  - JAUNDICE CHOLESTATIC [None]
  - LIVER FUNCTION TEST ABNORMAL [None]
  - LUNG HYPERINFLATION [None]
  - LYMPHOCYTE PERCENTAGE DECREASED [None]
  - POLYCHROMIC RED BLOOD CELLS PRESENT [None]
  - PORTAL VEIN OCCLUSION [None]
  - PROTEIN TOTAL DECREASED [None]
  - RED BLOOD CELL COUNT DECREASED [None]
  - RED BLOOD CELL TARGET CELLS PRESENT [None]
  - RED CELL DISTRIBUTION WIDTH INCREASED [None]
  - VENOOCCLUSIVE LIVER DISEASE [None]
  - WHITE BLOOD CELL COUNT DECREASED [None]
